FAERS Safety Report 4359141-X (Version None)
Quarter: 2004Q2

REPORT INFORMATION
  Report Type: 
  Country: None (occurrence: None)
  Receive Date: 20040512
  Receipt Date: 20040428
  Transmission Date: 20050107
  Serious: Yes (Hospitalization)
  Sender: FDA-Public Use
  Company Number: RENA-10956

PATIENT
  Age: 65 Year
  Sex: Male
  Weight: 46.5 kg

DRUGS (16)
  1. RENAGEL [Suspect]
     Indication: HYPERPHOSPHATAEMIA
     Dosage: 6.0 MG DAILY PO
     Route: 048
     Dates: start: 20030718, end: 20030801
  2. RENAGEL [Suspect]
     Indication: HYPERPHOSPHATAEMIA
     Dosage: 2.25 G DAILY PO
     Route: 048
     Dates: start: 20030802, end: 20030904
  3. RENAGEL [Suspect]
     Indication: HYPERPHOSPHATAEMIA
     Dosage: 2 G DAILY PO
     Route: 048
     Dates: start: 20030905, end: 20030905
  4. RENAGEL [Suspect]
     Indication: HYPERPHOSPHATAEMIA
     Dosage: 1.5 G DAILY PO
     Route: 048
     Dates: start: 20030906, end: 20031225
  5. RENAGEL [Suspect]
     Indication: HYPERPHOSPHATAEMIA
     Dosage: 1.75 G DAILY PO
     Route: 048
     Dates: start: 20031226, end: 20031226
  6. RENAGEL [Suspect]
     Indication: HYPERPHOSPHATAEMIA
     Dosage: 2.25 G DAILY PO
     Route: 048
     Dates: start: 20031227, end: 20040126
  7. TRIMEBUTINE MALEATE [Concomitant]
  8. REBAMIPIDE [Concomitant]
  9. NIFEDIPINE [Concomitant]
  10. METHYLDOPA [Concomitant]
  11. TEMOCAPRIL HYDROCHLORIDE [Concomitant]
  12. CARVEDILOL [Concomitant]
  13. LANSOPRAZOLE [Concomitant]
  14. FLUNITRAZEPAM [Concomitant]
  15. HERBAL EXTRACTIONS NOS, COPTIS [Concomitant]
  16. VALSARTAN [Concomitant]

REACTIONS (6)
  - ABDOMINAL PAIN [None]
  - CONSTIPATION [None]
  - DIVERTICULITIS [None]
  - DIVERTICULUM INTESTINAL [None]
  - HAEMODIALYSIS [None]
  - MARKEDLY REDUCED DIETARY INTAKE [None]
